FAERS Safety Report 9995555 (Version 2)
Quarter: 2014Q1

REPORT INFORMATION
  Report Type: Spontaneous
  Country: JP (occurrence: JP)
  Receive Date: 20140311
  Receipt Date: 20140311
  Transmission Date: 20141002
  Serious: Yes (Death, Life-Threatening, Other)
  Sender: FDA-Public Use
  Company Number: JP-PFIZER INC-2014052826

PATIENT
  Age: 70 Year
  Sex: Female

DRUGS (1)
  1. HALCION [Suspect]
     Route: 048

REACTIONS (2)
  - Incorrect dose administered [Fatal]
  - Altered state of consciousness [Fatal]
